FAERS Safety Report 11312558 (Version 1)
Quarter: 2015Q3

REPORT INFORMATION
  Report Type: Spontaneous
  Country: US (occurrence: US)
  Receive Date: 20150727
  Receipt Date: 20150727
  Transmission Date: 20151125
  Serious: Yes (Other)
  Sender: FDA-Public Use
  Company Number: US-ASTRAZENECA-2015SE72268

PATIENT
  Age: 70 Year
  Sex: Female

DRUGS (23)
  1. FASLODEX [Suspect]
     Active Substance: FULVESTRANT
     Route: 030
     Dates: start: 20120525
  2. LASIX [Concomitant]
     Active Substance: FUROSEMIDE
  3. LANTUS [Concomitant]
     Active Substance: INSULIN GLARGINE
     Dosage: 100 UNIT/ML
  4. ATIVAN [Concomitant]
     Active Substance: LORAZEPAM
  5. IBRANCE [Concomitant]
     Active Substance: PALBOCICLIB
  6. TENEX [Concomitant]
     Active Substance: GUANFACINE HYDROCHLORIDE
  7. FEMARA [Concomitant]
     Active Substance: LETROZOLE
  8. AMARYL [Concomitant]
     Active Substance: GLIMEPIRIDE
  9. HUMALOG [Concomitant]
     Active Substance: INSULIN LISPRO
     Route: 058
  10. ZOFRAN [Concomitant]
     Active Substance: ONDANSETRON HYDROCHLORIDE
  11. XELODA [Concomitant]
     Active Substance: CAPECITABINE
  12. LIPITOR [Concomitant]
     Active Substance: ATORVASTATIN CALCIUM
  13. CALTRATE [Concomitant]
     Active Substance: CALCIUM CARBONATE
     Dosage: 600
     Route: 048
  14. VITAMIN B12 [Concomitant]
     Active Substance: CYANOCOBALAMIN
     Dosage: 1000 MG TBCR
  15. TOPROL XL [Concomitant]
     Active Substance: METOPROLOL SUCCINATE
  16. TAXOL [Concomitant]
     Active Substance: PACLITAXEL
  17. XGEVA [Concomitant]
     Active Substance: DENOSUMAB
  18. AROMASIN [Concomitant]
     Active Substance: EXEMESTANE
  19. EVEROLIMUS [Concomitant]
     Active Substance: EVEROLIMUS
  20. ROCALTROL [Concomitant]
     Active Substance: CALCITRIOL
  21. FOLVITE [Concomitant]
     Active Substance: FOLIC ACID
  22. NORCO [Concomitant]
     Active Substance: ACETAMINOPHEN\HYDROCODONE BITARTRATE
     Dosage: 6-325 MG PER TABLET
  23. COMPAZINE [Concomitant]
     Active Substance: PROCHLORPERAZINE MALEATE

REACTIONS (5)
  - Type 2 diabetes mellitus [Unknown]
  - Alopecia [Unknown]
  - Anaemia [Unknown]
  - Thrombocytopenia [Unknown]
  - Breast cancer [Unknown]
